FAERS Safety Report 5152005-3 (Version None)
Quarter: 2006Q4

REPORT INFORMATION
  Report Type: 
  Country: None (occurrence: None)
  Receive Date: 20061116
  Receipt Date: 20061026
  Transmission Date: 20070319
  Serious: Yes (Hospitalization)
  Sender: FDA-Public Use
  Company Number: PHHO2006US17941

PATIENT
  Age: 47 Year
  Sex: Female

DRUGS (2)
  1. FEMARA [Suspect]
     Indication: BREAST CANCER
  2. PTK787/ZK222584 [Suspect]
     Indication: BREAST CANCER
     Dosage: 250 MG, BID
     Route: 048
     Dates: start: 20061010

REACTIONS (5)
  - CONFUSIONAL STATE [None]
  - DEPRESSED LEVEL OF CONSCIOUSNESS [None]
  - LOSS OF CONSCIOUSNESS [None]
  - NAUSEA [None]
  - VOMITING [None]
